FAERS Safety Report 12671225 (Version 1)
Quarter: 2016Q3

REPORT INFORMATION
  Report Type: Spontaneous
  Country: US (occurrence: US)
  Receive Date: 20160822
  Receipt Date: 20160822
  Transmission Date: 20161109
  Serious: No
  Sender: FDA-Public Use
  Company Number: US-TEVA-588076USA

PATIENT
  Age: 88 Year
  Sex: Female
  Weight: 4101 kg

DRUGS (4)
  1. FEXOFENADINE [Suspect]
     Active Substance: FEXOFENADINE\FEXOFENADINE HYDROCHLORIDE
     Indication: HYPERSENSITIVITY
     Dosage: 180 MILLIGRAM DAILY;
     Route: 048
     Dates: start: 20150812, end: 20150813
  2. LEVOTHYROXINE. [Concomitant]
     Active Substance: LEVOTHYROXINE
  3. ADVANCED COLON CARE [Suspect]
     Active Substance: DIETARY SUPPLEMENT
     Indication: IRRITABLE BOWEL SYNDROME
     Route: 048
     Dates: start: 20150807, end: 20150807
  4. XANAX [Concomitant]
     Active Substance: ALPRAZOLAM

REACTIONS (4)
  - Dysgeusia [Recovered/Resolved]
  - Drug administered to patient of inappropriate age [Recovered/Resolved]
  - Wrong technique in product usage process [Recovered/Resolved]
  - Diarrhoea [Recovered/Resolved]

NARRATIVE: CASE EVENT DATE: 20150812
